FAERS Safety Report 25044889 (Version 3)
Quarter: 2025Q1

REPORT INFORMATION
  Report Type: Report from Study
  Country: US (occurrence: US)
  Receive Date: 20250306
  Receipt Date: 20250331
  Transmission Date: 20250409
  Serious: Yes (Hospitalization)
  Sender: TAKEDA
  Company Number: US-TAKEDA-2025TUS019434

PATIENT
  Sex: Male

DRUGS (2)
  1. FRUQUINTINIB [Suspect]
     Active Substance: FRUQUINTINIB
     Indication: Colon cancer
  2. FRUQUINTINIB [Suspect]
     Active Substance: FRUQUINTINIB

REACTIONS (7)
  - Renal disorder [Unknown]
  - Post procedural complication [Unknown]
  - Blood potassium increased [Unknown]
  - Oral pain [Unknown]
  - Epistaxis [Unknown]
  - Dysphonia [Unknown]
  - Blood pressure increased [Unknown]
